FAERS Safety Report 8846048 (Version 1)
Quarter: 2012Q4

REPORT INFORMATION
  Report Type: Report from Study
  Country: RU (occurrence: RU)
  Receive Date: 20121017
  Receipt Date: 20121017
  Transmission Date: 20130627
  Serious: Yes (Death)
  Sender: FDA-Public Use
  Company Number: RU-ROCHE-1145878

PATIENT
  Age: 51 Year
  Sex: Female

DRUGS (2)
  1. TRASTUZUMAB [Suspect]
     Indication: GASTRIC CANCER
     Route: 065
     Dates: start: 20120730, end: 20121012
  2. CAPECITABINE [Suspect]
     Indication: GASTRIC CANCER
     Route: 048
     Dates: start: 20120730, end: 20121012

REACTIONS (2)
  - Respiratory failure [Fatal]
  - Disease progression [Fatal]
